FAERS Safety Report 21179990 (Version 3)
Quarter: 2023Q2

REPORT INFORMATION
  Report Type: Report from Study
  Country: JP (occurrence: JP)
  Receive Date: 20220805
  Receipt Date: 20230601
  Transmission Date: 20230721
  Serious: Yes (Death)
  Sender: FDA-Public Use
  Company Number: JP-BAYER-2022A109016

PATIENT
  Age: 65 Year
  Sex: Male
  Weight: 40.6 kg

DRUGS (1)
  1. VITRAKVI [Suspect]
     Active Substance: LAROTRECTINIB
     Indication: Oesophageal carcinoma
     Dosage: 100 MG, BID
     Dates: start: 20220531, end: 20220624

REACTIONS (3)
  - Myocardial infarction [Fatal]
  - Oesophageal carcinoma [Fatal]
  - Dizziness [Not Recovered/Not Resolved]

NARRATIVE: CASE EVENT DATE: 20220602
